FAERS Safety Report 11742048 (Version 1)
Quarter: 2015Q4

REPORT INFORMATION
  Report Type: Spontaneous
  Country: US (occurrence: None)
  Receive Date: 20151113
  Receipt Date: 20151113
  Transmission Date: 20160304
  Serious: Yes (Disabling)
  Sender: FDA-Public Use
  Company Number: None

PATIENT
  Age: 79 Year
  Sex: Male
  Weight: 89.81 kg

DRUGS (1)
  1. PRAVASTATIN [Suspect]
     Active Substance: PRAVASTATIN\PRAVASTATIN SODIUM
     Indication: BLOOD CHOLESTEROL INCREASED
     Route: 048
     Dates: start: 20050831, end: 20130215

REACTIONS (5)
  - Balance disorder [None]
  - Arthralgia [None]
  - Sensory disturbance [None]
  - Activities of daily living impaired [None]
  - Pain in extremity [None]

NARRATIVE: CASE EVENT DATE: 20151112
